FAERS Safety Report 4750630-2 (Version None)
Quarter: 2005Q3

REPORT INFORMATION
  Report Type: 
  Country: None (occurrence: None)
  Receive Date: 20050823
  Receipt Date: 20050609
  Transmission Date: 20060218
  Serious: Yes (Hospitalization, Other)
  Sender: FDA-Public Use
  Company Number: PHNU2005DE02217

PATIENT
  Age: 70 Year
  Sex: Male
  Weight: 85 kg

DRUGS (6)
  1. CARBAMAZEPINE [Suspect]
     Indication: EPILEPSY
     Dosage: UNK, UNK
     Dates: end: 20030101
  2. CARBAMAZEPINE [Suspect]
     Dosage: 200 MG, BID
     Route: 048
     Dates: start: 20030101, end: 20050607
  3. CAPTOPRIL [Concomitant]
     Dosage: 12.5 MG/DAY
     Route: 048
  4. MELPERONE [Concomitant]
     Dosage: 25 MG/DAY
     Route: 048
  5. HALDOL [Concomitant]
     Dosage: 30 MG/DAY
     Route: 048
  6. INSUMAN COMB [Concomitant]

REACTIONS (8)
  - ANAEMIA HAEMOLYTIC AUTOIMMUNE [None]
  - BLOOD LACTATE DEHYDROGENASE INCREASED [None]
  - BLOOD THYROID STIMULATING HORMONE INCREASED [None]
  - HAEMOGLOBIN DECREASED [None]
  - HYPOTHYROIDISM [None]
  - NORMOCHROMIC NORMOCYTIC ANAEMIA [None]
  - THYROXINE FREE DECREASED [None]
  - VOMITING [None]
